FAERS Safety Report 15890616 (Version 1)
Quarter: 2019Q1

REPORT INFORMATION
  Report Type: Spontaneous
  Country: NL (occurrence: NL)
  Receive Date: 20190130
  Receipt Date: 20190130
  Transmission Date: 20190417
  Serious: Yes (Other)
  Sender: FDA-Public Use
  Company Number: NL-JNJFOC-20190125943

PATIENT
  Age: 77 Year
  Sex: Male
  Weight: 80 kg

DRUGS (3)
  1. BETAMETHASONE. [Concomitant]
     Active Substance: BETAMETHASONE
     Route: 065
  2. STELARA [Suspect]
     Active Substance: USTEKINUMAB
     Indication: PSORIASIS
     Route: 058
     Dates: start: 2018
  3. STELARA [Suspect]
     Active Substance: USTEKINUMAB
     Indication: PSORIASIS
     Route: 058

REACTIONS (5)
  - Drug ineffective [Unknown]
  - Myocardial infarction [Recovered/Resolved]
  - Off label use [Unknown]
  - Product use issue [Unknown]
  - Psoriasis [Unknown]

NARRATIVE: CASE EVENT DATE: 20190116
